FAERS Safety Report 8512838-X (Version None)
Quarter: 2012Q3

REPORT INFORMATION
  Report Type: 
  Country: None (occurrence: None)
  Receive Date: 20120716
  Receipt Date: 20120704
  Transmission Date: 20120928
  Serious: Yes (Death, Other)
  Sender: FDA-Public Use
  Company Number: ID-BAYER-2012-065970

PATIENT
  Age: 85 Year
  Sex: Male

DRUGS (1)
  1. NEXAVAR [Suspect]
     Indication: HEPATIC NEOPLASM MALIGNANT
     Dosage: 200 MG, BID
     Route: 048
     Dates: start: 20120501

REACTIONS (4)
  - PULMONARY HAEMORRHAGE [None]
  - LUNG INFILTRATION [None]
  - DEATH [None]
  - DYSPNOEA [None]
